FAERS Safety Report 7266280-2 (Version None)
Quarter: 2011Q1

REPORT INFORMATION
  Report Type: 
  Country: None (occurrence: None)
  Receive Date: 20110131
  Receipt Date: 20110124
  Transmission Date: 20110831
  Serious: Yes (Other)
  Sender: FDA-Public Use
  Company Number: US-AMGEN-USASP2011003763

PATIENT
  Age: 12 Year
  Sex: Female

DRUGS (4)
  1. ENBREL [Suspect]
     Indication: JUVENILE ARTHRITIS
     Dosage: 50 MG, QWK
     Dates: start: 20110118
  2. ORENCIA [Concomitant]
  3. METHOTREXATE [Concomitant]
  4. PREDNISONE [Concomitant]

REACTIONS (7)
  - HYPERSOMNIA [None]
  - JOINT LOCK [None]
  - INJECTION SITE PAIN [None]
  - JUVENILE ARTHRITIS [None]
  - GAIT DISTURBANCE [None]
  - PYREXIA [None]
  - INJECTION SITE SWELLING [None]
